FAERS Safety Report 7833088-6 (Version None)
Quarter: 2011Q4

REPORT INFORMATION
  Report Type: 
  Country: None (occurrence: None)
  Receive Date: 20111024
  Receipt Date: 20111013
  Transmission Date: 20120403
  Serious: Yes (Hospitalization, Other)
  Sender: FDA-Public Use
  Company Number: US-US-EMD SERONO, INC.-7019937

PATIENT
  Sex: Female
  Weight: 101 kg

DRUGS (13)
  1. HUMALOG [Concomitant]
     Indication: DIABETES MELLITUS
     Dates: start: 20080901
  2. BENAZEPRIL HYDROCHLORIDE [Concomitant]
     Indication: HYPERTENSION
  3. CELEXA [Concomitant]
     Indication: BIPOLAR DISORDER
     Dates: end: 20090101
  4. REBIF [Suspect]
     Route: 058
     Dates: start: 20080926, end: 20110201
  5. MORPHINE [Concomitant]
     Indication: OSTEOARTHRITIS
     Route: 048
     Dates: end: 20100101
  6. LEVOTHYROXINE SODIUM [Concomitant]
     Indication: HYPOTHYROIDISM
  7. CELEXA [Concomitant]
     Dates: start: 20090101
  8. AMLODIPINE [Concomitant]
     Indication: HYPERTENSION
  9. KLONOPIN [Concomitant]
  10. REBIF [Suspect]
     Indication: MULTIPLE SCLEROSIS
     Route: 058
     Dates: start: 20080926, end: 20110201
  11. SIMVASTATIN [Concomitant]
     Indication: BLOOD CHOLESTEROL INCREASED
  12. FUROSEMIDE [Concomitant]
     Indication: HYPERTENSION
  13. HUMALOG [Concomitant]
     Dates: start: 20100101

REACTIONS (12)
  - CYSTITIS [None]
  - NEPHROLITHIASIS [None]
  - BLOOD GLUCOSE INCREASED [None]
  - CARDIAC FAILURE CONGESTIVE [None]
  - KIDNEY INFECTION [None]
  - CANDIDIASIS [None]
  - PNEUMONIA [None]
  - ACCIDENTAL OVERDOSE [None]
  - RENAL FAILURE [None]
  - SEPSIS [None]
  - DEPRESSION [None]
  - URINARY TRACT INFECTION [None]
